FAERS Safety Report 8983354 (Version 2)
Quarter: 2013Q1

REPORT INFORMATION
  Report Type: Spontaneous
  Country: US (occurrence: US)
  Receive Date: 20121224
  Receipt Date: 20130220
  Transmission Date: 20140127
  Serious: No
  Sender: FDA-Public Use
  Company Number: US-BIOGENIDEC-2012BI043108

PATIENT
  Age: 51 None
  Sex: Female

DRUGS (3)
  1. AVONEX [Suspect]
     Indication: MULTIPLE SCLEROSIS
     Route: 030
     Dates: start: 19990201
  2. AVONEX [Suspect]
     Indication: MULTIPLE SCLEROSIS
     Route: 030
     Dates: start: 20000201
  3. AVONEX [Suspect]
     Indication: MULTIPLE SCLEROSIS
     Route: 030

REACTIONS (13)
  - Burnout syndrome [Recovered/Resolved]
  - Coordination abnormal [Recovered/Resolved]
  - Migraine [Recovered/Resolved]
  - Goitre [Recovered/Resolved]
  - Infection [Recovered/Resolved]
  - Temperature intolerance [Recovered/Resolved with Sequelae]
  - Contusion [Not Recovered/Not Resolved]
  - Memory impairment [Not Recovered/Not Resolved]
  - Paraesthesia [Recovered/Resolved]
  - Multiple sclerosis relapse [Recovered/Resolved]
  - Influenza like illness [Not Recovered/Not Resolved]
  - Injection site infection [Recovered/Resolved]
  - Feeling hot [Unknown]
